FAERS Safety Report 4548294-6 (Version None)
Quarter: 2005Q1

REPORT INFORMATION
  Report Type: 
  Country: None (occurrence: None)
  Receive Date: 20050110
  Receipt Date: 20041217
  Transmission Date: 20050727
  Serious: No
  Sender: FDA-Public Use
  Company Number: AU-MERCK-0412AUS00104

PATIENT

DRUGS (1)
  1. ZOCOR [Suspect]
     Route: 048
     Dates: start: 19940101

REACTIONS (1)
  - MYOSITIS [None]
